FAERS Safety Report 8010541-6 (Version None)
Quarter: 2011Q4

REPORT INFORMATION
  Report Type: 
  Country: None (occurrence: None)
  Receive Date: 20111228
  Receipt Date: 20111220
  Transmission Date: 20120403
  Serious: Yes (Other)
  Sender: FDA-Public Use
  Company Number: PHHY2011BR111372

PATIENT
  Sex: Female

DRUGS (4)
  1. EXFORGE [Suspect]
     Dosage: 1 TABLET (320/10MG ) DAILY
  2. SPIRONOLACTONE [Concomitant]
     Dosage: UNK UKN, UNK
  3. DIOVAN [Suspect]
     Indication: HYPERTENSION
     Dosage: 320 MG, QD
  4. EXFORGE [Suspect]
     Dosage: 1 TABLET (320/5MG ) DAILY

REACTIONS (3)
  - THROMBOSIS [None]
  - PAIN IN EXTREMITY [None]
  - OEDEMA PERIPHERAL [None]
